FAERS Safety Report 25507103 (Version 3)
Quarter: 2025Q3

REPORT INFORMATION
  Report Type: Spontaneous
  Country: US (occurrence: US)
  Receive Date: 20250702
  Receipt Date: 20250716
  Transmission Date: 20251021
  Serious: No
  Sender: AMGEN
  Company Number: US-AMGEN-USASP2025127468

PATIENT
  Age: 52 Year
  Sex: Female
  Weight: 88.5 kg

DRUGS (2)
  1. NEULASTA [Suspect]
     Active Substance: PEGFILGRASTIM
     Indication: Breast cancer
     Route: 065
  2. NEULASTA [Suspect]
     Active Substance: PEGFILGRASTIM
     Indication: Anaemia
     Route: 065

REACTIONS (2)
  - Device occlusion [Unknown]
  - Device use error [Unknown]

NARRATIVE: CASE EVENT DATE: 20250601
